FAERS Safety Report 5218456-3 (Version None)
Quarter: 2007Q1

REPORT INFORMATION
  Report Type: 
  Country: None (occurrence: None)
  Receive Date: 20061201
  Receipt Date: 20060103
  Transmission Date: 20070707
  Serious: Yes (Other)
  Sender: FDA-Public Use
  Company Number: SUS1-2006-00002

PATIENT
  Age: 52 Year
  Sex: Male
  Weight: 83.9 kg

DRUGS (4)
  1. ADDERALL 10 [Suspect]
     Indication: ATTENTION DEFICIT/HYPERACTIVITY DISORDER
     Dosage: 30 MG, 3X/DAY:TID,
  2. CORTICOSTEROIDS [Concomitant]
  3. BLAXIN (CLARITHROMYCIN) [Concomitant]
  4. COUGH SYRUP (TERPIN HYDRATE, ANTIMONY POTASSIUM TARTRATE, PAPAVER SOMN [Concomitant]

REACTIONS (3)
  - CONVULSION [None]
  - IMPAIRED DRIVING ABILITY [None]
  - PRESCRIBED OVERDOSE [None]
